FAERS Safety Report 9470967 (Version 1)
Quarter: 2013Q3

REPORT INFORMATION
  Report Type: Spontaneous
  Country: TR (occurrence: None)
  Receive Date: 20130815
  Receipt Date: 20130815
  Transmission Date: 20140515
  Serious: Yes (Hospitalization)
  Sender: FDA-Public Use
  Company Number: 1837750

PATIENT
  Age: 50 Year
  Sex: Female

DRUGS (8)
  1. CALCIUM FOLINATE [Suspect]
     Indication: ADENOCARCINOMA OF COLON
  2. IRINOTECAN HYDROCHLORIDE [Suspect]
     Indication: ADENOCARCINOMA OF COLON
  3. FLUOROURACIL [Suspect]
     Indication: ADENOCARCINOMA OF COLON
  4. DEXAMETHASONE [Suspect]
     Indication: PROPHYLAXIS OF NAUSEA AND VOMITING
     Dosage: 16 MG MILLIGRAM(S), 1 DAY, INTRAVENOUS (NOT
     Route: 042
  5. ONDANSETRON [Suspect]
     Indication: PROPHYLAXIS OF NAUSEA AND VOMITING
     Route: 042
  6. CODEINE [Suspect]
     Indication: PAIN
     Route: 048
  7. PIROXICAM [Suspect]
     Indication: PAIN
     Route: 048
  8. OMEPRAZOLE [Suspect]
     Indication: PROPHYLAXIS AGAINST GASTROINTESTINAL ULCER
     Route: 048

REACTIONS (5)
  - Pancreatitis acute [None]
  - Abdominal pain [None]
  - Decreased appetite [None]
  - Nausea [None]
  - Vomiting [None]
